FAERS Safety Report 6534968-4 (Version None)
Quarter: 2010Q1

REPORT INFORMATION
  Report Type: 
  Country: None (occurrence: None)
  Receive Date: 20100111
  Receipt Date: 20100111
  Transmission Date: 20100710
  Serious: Yes (Hospitalization)
  Sender: FDA-Public Use
  Company Number: None

PATIENT
  Age: 86 Year
  Sex: Male
  Weight: 90 kg

DRUGS (2)
  1. METOPROLOL TARTRATE [Suspect]
     Indication: BRADYCARDIA
     Dosage: 12.5 MG BID PO
     Route: 048
     Dates: start: 20081210, end: 20091223
  2. DORZOLAMIDE HYDROCHLORIDE AND TIMOLOL MALEATE [Suspect]
     Indication: BRADYCARDIA
     Dosage: 1 DROPS BID EYE
     Dates: start: 20091022, end: 20091023

REACTIONS (5)
  - BRADYCARDIA [None]
  - CONFUSIONAL STATE [None]
  - HYPOGLYCAEMIA [None]
  - HYPOPERFUSION [None]
  - TRANSIENT ISCHAEMIC ATTACK [None]
